FAERS Safety Report 9703275 (Version 2)
Quarter: 2013Q4

REPORT INFORMATION
  Report Type: Spontaneous
  Country: US (occurrence: US)
  Receive Date: 20131122
  Receipt Date: 20131218
  Transmission Date: 20140711
  Serious: Yes (Other)
  Sender: FDA-Public Use
  Company Number: US-AMGEN-USASP2013081137

PATIENT
  Age: 64 Year
  Sex: Female

DRUGS (2)
  1. PROLIA [Suspect]
     Indication: OSTEOPOROSIS
     Dosage: UNK
     Route: 065
     Dates: start: 201304
  2. VITAMIN C /00008001/ [Suspect]
     Dosage: UNK
     Route: 042
     Dates: start: 201308

REACTIONS (9)
  - Ovarian cancer [Unknown]
  - Peripheral coldness [Unknown]
  - Dizziness [Unknown]
  - Shock [Unknown]
  - Vomiting [Unknown]
  - Cold sweat [Unknown]
  - Sensory loss [Unknown]
  - Food allergy [Unknown]
  - Hypersensitivity [Unknown]
